FAERS Safety Report 7779083-7 (Version None)
Quarter: 2011Q3

REPORT INFORMATION
  Report Type: 
  Country: None (occurrence: None)
  Receive Date: 20110926
  Receipt Date: 20110915
  Transmission Date: 20111222
  Serious: Yes (Death, Life-Threatening, Hospitalization)
  Sender: FDA-Public Use
  Company Number: FR-TEVA-283816ISR

PATIENT
  Sex: Male
  Weight: 60 kg

DRUGS (27)
  1. PREDNISONE [Suspect]
     Indication: MULTIPLE MYELOMA
     Dates: start: 20091029
  2. VELCADE [Suspect]
     Indication: MULTIPLE MYELOMA
     Dosage: DAY 1, 4, 8,
     Route: 042
     Dates: start: 20101011, end: 20101021
  3. ESCITALOPRAM OXALATE [Concomitant]
     Indication: HYPOKINESIA
     Route: 048
     Dates: start: 20100901, end: 20101026
  4. THALIDOMIDE [Suspect]
     Indication: MULTIPLE MYELOMA
     Route: 048
     Dates: start: 20091029
  5. ACETAMINOPHEN [Concomitant]
     Indication: BONE PAIN
     Route: 048
     Dates: start: 20090801, end: 20091026
  6. LEVOFLOXACIN [Concomitant]
     Indication: LUNG INFECTION
     Route: 048
     Dates: start: 20100906, end: 20100916
  7. DURAGESIC-100 [Concomitant]
     Indication: HYPERTENSION
  8. INNOHEP [Concomitant]
     Indication: THROMBOSIS PROPHYLAXIS
     Dosage: .5 ML;
     Route: 058
     Dates: start: 20100414, end: 20100929
  9. SYMBICORT [Concomitant]
     Indication: ASTHMA
     Dosage: 800 MICROGRAM;
     Route: 055
     Dates: start: 20100415, end: 20101026
  10. THALIDOMIDE [Suspect]
     Route: 048
     Dates: start: 20100819, end: 20100929
  11. ATENOLOL [Concomitant]
     Indication: HYPERTENSION
  12. DURAGESIC-100 [Concomitant]
     Indication: BONE PAIN
     Route: 062
     Dates: start: 20100918, end: 20101004
  13. ACTIQ [Concomitant]
     Indication: HYPERTENSION
     Dosage: 3600 MICROGRAM;
     Route: 048
     Dates: start: 20100918, end: 20101026
  14. FLUID (BARIUM SULFATE) [Concomitant]
     Indication: HYPERTENSION
  15. PREDNISONE [Suspect]
     Dates: start: 20100819, end: 20100822
  16. TADENEN (PYGEUM AFRICANUM) [Concomitant]
     Indication: PROPHYLAXIS
     Dosage: 50 MILLIGRAM;
     Route: 048
     Dates: start: 20100504, end: 20100926
  17. ACTIQ [Concomitant]
     Indication: BONE PAIN
     Route: 048
     Dates: start: 20100721, end: 20100917
  18. DIURETICS [Concomitant]
     Indication: HYPERTENSION
  19. ATENOLOL [Concomitant]
     Indication: ATRIAL FIBRILLATION
     Route: 048
     Dates: start: 20100304, end: 20101026
  20. ESCITALOPRAM OXALATE [Concomitant]
     Indication: HYPERTENSION
  21. FLUID (BARIUM SULFATE) [Concomitant]
     Indication: RENAL FAILURE
     Route: 042
     Dates: start: 20101009, end: 20101011
  22. DEXAMETHASONE [Suspect]
     Indication: MULTIPLE MYELOMA
     Dosage: DAY 1, 4, 8, 11,
     Route: 048
     Dates: start: 20101011, end: 20101021
  23. MELPHALAN HYDROCHLORIDE [Suspect]
     Indication: MULTIPLE MYELOMA
     Dates: start: 20091029
  24. MELPHALAN HYDROCHLORIDE [Suspect]
     Dates: start: 20100819, end: 20100822
  25. ANTITHROMBOTIC AGENTS [Concomitant]
     Indication: THROMBOSIS PROPHYLAXIS
  26. LEVOFLOXACIN [Concomitant]
     Indication: HYPERTENSION
  27. DIURETICS [Concomitant]
     Indication: GENERALISED OEDEMA
     Route: 042
     Dates: start: 20101010, end: 20101001

REACTIONS (4)
  - PULMONARY HAEMORRHAGE [None]
  - LUNG INFECTION [None]
  - MULTIPLE MYELOMA [None]
  - PERFORMANCE STATUS DECREASED [None]
